FAERS Safety Report 4508248-2 (Version None)
Quarter: 2004Q4

REPORT INFORMATION
  Report Type: 
  Country: None (occurrence: None)
  Receive Date: 20041123
  Receipt Date: 20031203
  Transmission Date: 20050328
  Serious: No
  Sender: FDA-Public Use
  Company Number: US-GLAXOSMITHKLINE-A0441762A

PATIENT

DRUGS (2)
  1. WELLBUTRIN [Suspect]
  2. WELLBUTRIN [Suspect]
     Indication: ILL-DEFINED DISORDER
     Route: 048

REACTIONS (1)
  - HYPERHIDROSIS [None]
